FAERS Safety Report 24631195 (Version 1)
Quarter: 2024Q4

REPORT INFORMATION
  Report Type: Spontaneous
  Country: US (occurrence: None)
  Receive Date: 20241117
  Receipt Date: 20241117
  Transmission Date: 20250114
  Serious: Yes (Hospitalization)
  Sender: Public
  Company Number: None

PATIENT
  Age: 34 Year
  Sex: Female
  Weight: 76.5 kg

DRUGS (1)
  1. OLANZAPINE [Suspect]
     Active Substance: OLANZAPINE
     Indication: Agitation
     Route: 048

REACTIONS (3)
  - Electrocardiogram QT prolonged [None]
  - Blood magnesium decreased [None]
  - Blood potassium decreased [None]

NARRATIVE: CASE EVENT DATE: 20241113
